FAERS Safety Report 19180102 (Version 1)
Quarter: 2021Q2

REPORT INFORMATION
  Report Type: Spontaneous
  Country: US (occurrence: US)
  Receive Date: 20210426
  Receipt Date: 20210426
  Transmission Date: 20210717
  Serious: Yes (Other)
  Sender: FDA-Public Use
  Company Number: US-CELGENEUS-USA-20210405313

PATIENT
  Age: 79 Year
  Sex: Female

DRUGS (5)
  1. THALOMID [Suspect]
     Active Substance: THALIDOMIDE
     Dosage: 50?100 MILLIGRAM
     Route: 048
     Dates: start: 200703
  2. THALOMID [Suspect]
     Active Substance: THALIDOMIDE
     Dosage: 50 MILLIGRAM
     Route: 048
     Dates: start: 20210101
  3. THALOMID [Suspect]
     Active Substance: THALIDOMIDE
     Indication: PLASMA CELL MYELOMA
     Dosage: 50 MILLIGRAM
     Route: 048
     Dates: start: 200608
  4. THALOMID [Suspect]
     Active Substance: THALIDOMIDE
     Dosage: 150?100 MILLIGRAM
     Route: 048
     Dates: start: 200707
  5. THALOMID [Suspect]
     Active Substance: THALIDOMIDE
     Dosage: 50?100 MILLIGRAM
     Route: 048
     Dates: start: 200710

REACTIONS (1)
  - Neuropathy peripheral [Not Recovered/Not Resolved]

NARRATIVE: CASE EVENT DATE: 20210208
